FAERS Safety Report 7892431-2 (Version None)
Quarter: 2011Q4

REPORT INFORMATION
  Report Type: 
  Country: None (occurrence: None)
  Receive Date: 20111104
  Receipt Date: 20111103
  Transmission Date: 20120403
  Serious: Yes (Hospitalization)
  Sender: FDA-Public Use
  Company Number: GB-AMGEN-GBRCT2011052703

PATIENT
  Age: 69 Year
  Sex: Female

DRUGS (2)
  1. DOCETAXEL [Concomitant]
     Dosage: UNK
     Route: 042
     Dates: start: 20111005
  2. DENOSUMAB [Suspect]
     Indication: BREAST CANCER
     Dosage: 120 MG, UNK
     Route: 058
     Dates: start: 20110817

REACTIONS (4)
  - NEUTROPENIA [None]
  - URINARY TRACT INFECTION [None]
  - VULVOVAGINAL CANDIDIASIS [None]
  - PYREXIA [None]
